FAERS Safety Report 7589708-7 (Version None)
Quarter: 2011Q3

REPORT INFORMATION
  Report Type: 
  Country: None (occurrence: None)
  Receive Date: 20110705
  Receipt Date: 20110623
  Transmission Date: 20111222
  Serious: Yes (Other)
  Sender: FDA-Public Use
  Company Number: US-BAYER-2011-054255

PATIENT
  Sex: Female

DRUGS (1)
  1. MIRENA [Suspect]
     Dosage: UNK
     Dates: start: 20080101, end: 20110401

REACTIONS (4)
  - ANXIETY [None]
  - OVARIAN CYST [None]
  - POST PROCEDURAL HAEMORRHAGE [None]
  - PAIN [None]
